FAERS Safety Report 8353033-7 (Version None)
Quarter: 2012Q2

REPORT INFORMATION
  Report Type: 
  Country: None (occurrence: None)
  Receive Date: 20120511
  Receipt Date: 20120504
  Transmission Date: 20120825
  Serious: Yes (Hospitalization)
  Sender: FDA-Public Use
  Company Number: US-BRISTOL-MYERS SQUIBB COMPANY-16540072

PATIENT
  Age: 68 Year
  Sex: Female
  Weight: 79 kg

DRUGS (5)
  1. CARBOPLATIN [Suspect]
     Indication: NON-SMALL CELL LUNG CANCER
     Dosage: 1DF=6AUC; DAY 1 EVERY 21 DAYS;DISCONTINUED ON 15JUN10
     Route: 042
     Dates: start: 20100427, end: 20100518
  2. FOLIC ACID [Concomitant]
     Dates: start: 20100421
  3. BEVACIZUMAB [Suspect]
     Indication: NON-SMALL CELL LUNG CANCER
     Dosage: DAY 1 EVERY 21 DAYS; DISCONTINUED ON 15JUN10
     Route: 042
     Dates: start: 20100427, end: 20100518
  4. PEMETREXED DISODIUM [Suspect]
     Indication: NON-SMALL CELL LUNG CANCER
     Dosage: DAY 1 EVERY 21 DAYS;DISCONTINUED ON 15JUN10
     Route: 042
     Dates: start: 20100427, end: 20100518
  5. VITAMIN B-12 [Concomitant]
     Dates: start: 20100421

REACTIONS (1)
  - DIVERTICULAR PERFORATION [None]
